FAERS Safety Report 6370014-3 (Version None)
Quarter: 2009Q3

REPORT INFORMATION
  Report Type: 
  Country: None (occurrence: None)
  Receive Date: 20090923
  Receipt Date: 20070501
  Transmission Date: 20100115
  Serious: Yes (Hospitalization)
  Sender: FDA-Public Use
  Company Number: US-ASTRAZENECA-2006UW08785

PATIENT
  Age: 32 Year
  Sex: Male
  Weight: 131.5 kg

DRUGS (25)
  1. SEROQUEL [Suspect]
     Indication: SLEEP DISORDER
     Dosage: 25-100 MG
     Route: 048
     Dates: start: 19970701
  2. SEROQUEL [Suspect]
     Indication: DEPRESSION
     Dosage: 25-100 MG
     Route: 048
     Dates: start: 19970701
  3. SEROQUEL [Suspect]
     Indication: ANXIETY
     Dosage: 25-100 MG
     Route: 048
     Dates: start: 19970701
  4. SEROQUEL [Suspect]
     Dosage: 20 MG - 300 MG
     Route: 048
     Dates: start: 19971001
  5. SEROQUEL [Suspect]
     Dosage: 20 MG - 300 MG
     Route: 048
     Dates: start: 19971001
  6. SEROQUEL [Suspect]
     Dosage: 20 MG - 300 MG
     Route: 048
     Dates: start: 19971001
  7. VICODIN [Concomitant]
  8. NEXIUM [Concomitant]
  9. XANAX [Concomitant]
  10. ACTOS [Concomitant]
  11. QUININE SULFATE [Concomitant]
  12. PREDNISONE TAB [Concomitant]
  13. WELLBUTRIN [Concomitant]
  14. PAXIL [Concomitant]
  15. NAPROXEN [Concomitant]
  16. LOVENOX [Concomitant]
  17. PROTONIX [Concomitant]
  18. COUMADIN [Concomitant]
  19. KLONOPIN [Concomitant]
  20. PREVACID [Concomitant]
  21. LAMISIL [Concomitant]
  22. REGLAN [Concomitant]
  23. ATENOLOL [Concomitant]
  24. AMARYL [Concomitant]
  25. INSULIN [Concomitant]

REACTIONS (5)
  - DIABETES MELLITUS [None]
  - DIABETES MELLITUS INADEQUATE CONTROL [None]
  - EMOTIONAL DISTRESS [None]
  - ERECTILE DYSFUNCTION [None]
  - TYPE 2 DIABETES MELLITUS [None]
